FAERS Safety Report 9369667 (Version 1)
Quarter: 2013Q2

REPORT INFORMATION
  Report Type: Spontaneous
  Country: US (occurrence: None)
  Receive Date: 20130625
  Receipt Date: 20130625
  Transmission Date: 20140414
  Serious: Yes (Other)
  Sender: FDA-Public Use
  Company Number: None

PATIENT
  Age: 68 Year
  Sex: Female
  Weight: 63.96 kg

DRUGS (1)
  1. XEOMIN [Suspect]
     Indication: SKIN WRINKLING
     Dosage: INJECTION BY PLASTIC SURGEON
     Dates: start: 20130604, end: 20130604

REACTIONS (8)
  - Neck pain [None]
  - Nausea [None]
  - Headache [None]
  - Abdominal pain upper [None]
  - Fatigue [None]
  - Eyelid ptosis [None]
  - Diarrhoea [None]
  - Eyelid oedema [None]
